FAERS Safety Report 10008819 (Version 2)
Quarter: 2014Q1

REPORT INFORMATION
  Report Type: Spontaneous
  Country: US (occurrence: US)
  Receive Date: 20140312
  Receipt Date: 20140312
  Transmission Date: 20141002
  Serious: No
  Sender: FDA-Public Use
  Company Number: US-INCYTE CORPORATION-2012IN000537

PATIENT
  Sex: Male

DRUGS (6)
  1. JAKAFI [Suspect]
     Indication: MYELOFIBROSIS
     Dosage: 20 MG, BID
     Route: 048
     Dates: start: 20111205, end: 20120111
  2. JAKAFI [Suspect]
     Dosage: 15 MG, BID
     Route: 048
     Dates: start: 20120112
  3. ASPIRIN [Concomitant]
     Dosage: 325 MG, QD
  4. METOPROLOL [Concomitant]
     Dosage: 25 MG, BID
  5. ALLOPURINOL [Concomitant]
     Dosage: 100 MG, BID
  6. LIPITOR [Concomitant]
     Dosage: 10 MG, QD

REACTIONS (1)
  - White blood cell count increased [Unknown]
